FAERS Safety Report 4899548-5 (Version None)
Quarter: 2006Q1

REPORT INFORMATION
  Report Type: 
  Country: None (occurrence: None)
  Receive Date: 20060118
  Receipt Date: 20050909
  Transmission Date: 20060701
  Serious: Yes (Hospitalization)
  Sender: FDA-Public Use
  Company Number: 2005001773

PATIENT
  Age: 69 Year
  Sex: Female

DRUGS (7)
  1. TARCEVA [Suspect]
     Indication: NEOPLASM MALIGNANT
     Dosage: 100 MG (QD), ORAL
     Route: 048
     Dates: start: 20050501, end: 20050831
  2. ADALAT [Concomitant]
  3. POTASSIUM (POTASSIUM) [Concomitant]
  4. ATENOLOL [Concomitant]
  5. AVENZA (ALBENDAZOLE) [Concomitant]
  6. PRAVACHOL [Concomitant]
  7. LORTAB [Concomitant]

REACTIONS (1)
  - GASTROINTESTINAL HAEMORRHAGE [None]
